FAERS Safety Report 4518279-4 (Version None)
Quarter: 2004Q4

REPORT INFORMATION
  Report Type: 
  Country: None (occurrence: None)
  Receive Date: 20041130
  Receipt Date: 20041124
  Transmission Date: 20050328
  Serious: Yes (Hospitalization)
  Sender: FDA-Public Use
  Company Number: MK200411-0248-1

PATIENT
  Age: 22 Year
  Sex: Male

DRUGS (3)
  1. METHYLPHENIDATE HCL [Suspect]
     Indication: ATTENTION DEFICIT/HYPERACTIVITY DISORDER
     Dosage: 20MG, TID
  2. DEXTROAMPHETAMINE AND AMPHETAMINE MIXED SALTS [Suspect]
     Indication: ATTENTION DEFICIT/HYPERACTIVITY DISORDER
     Dosage: 20MG, 20MG BID
  3. ESCITALOPRAM [Concomitant]

REACTIONS (10)
  - AGITATION [None]
  - ASPARTATE AMINOTRANSFERASE INCREASED [None]
  - BLOOD BILIRUBIN INCREASED [None]
  - BLOOD CREATINE PHOSPHOKINASE INCREASED [None]
  - DISTURBANCE IN ATTENTION [None]
  - DYSKINESIA [None]
  - HEART RATE INCREASED [None]
  - LOGORRHOEA [None]
  - NAUSEA [None]
  - TREMOR [None]
